FAERS Safety Report 6206184-7 (Version None)
Quarter: 2009Q2

REPORT INFORMATION
  Report Type: 
  Country: None (occurrence: None)
  Receive Date: 20090528
  Receipt Date: 20081014
  Transmission Date: 20091009
  Serious: No
  Sender: FDA-Public Use
  Company Number: US-KINGPHARMUSA00001-K200801200

PATIENT
  Age: 57 Year
  Sex: Female

DRUGS (4)
  1. AVINZA [Suspect]
     Indication: BACK PAIN
     Dosage: UNK, TID (2 IN AM; 2 AT DAY; 2 AT NIGHT)
     Route: 048
     Dates: start: 20080710
  2. PRILOSEC [Concomitant]
     Indication: GASTRIC DISORDER
     Dosage: UNK, QD
     Route: 048
  3. KLONOPIN [Concomitant]
     Indication: ANXIETY
     Dosage: UNK, PRN
     Route: 048
  4. PERCOCET [Concomitant]
     Dosage: UNK, PRN
     Route: 048

REACTIONS (24)
  - ABDOMINAL PAIN [None]
  - AMNESIA [None]
  - ANOREXIA [None]
  - ASTHENIA [None]
  - CHOKING [None]
  - CONSTIPATION [None]
  - CRYING [None]
  - DIARRHOEA [None]
  - DRUG INEFFECTIVE [None]
  - DRY MOUTH [None]
  - DYSPNOEA [None]
  - FATIGUE [None]
  - FEELING ABNORMAL [None]
  - FLUSHING [None]
  - HEADACHE [None]
  - HOT FLUSH [None]
  - HYPERHIDROSIS [None]
  - INSOMNIA [None]
  - MONOPARESIS [None]
  - MOOD SWINGS [None]
  - NAUSEA [None]
  - PALPITATIONS [None]
  - VOMITING [None]
  - WEIGHT DECREASED [None]
